FAERS Safety Report 8555005-6 (Version None)
Quarter: 2012Q3

REPORT INFORMATION
  Report Type: 
  Country: None (occurrence: None)
  Receive Date: 20120731
  Receipt Date: 20120726
  Transmission Date: 20120928
  Serious: Yes (Other)
  Sender: FDA-Public Use
  Company Number: JP-ABBOTT-12P-087-0952689-00

PATIENT
  Sex: Male
  Weight: 59 kg

DRUGS (7)
  1. MESALAMINE [Concomitant]
     Indication: CROHN'S DISEASE
     Route: 048
     Dates: start: 20120316
  2. PREDNISOLONE [Concomitant]
     Indication: CROHN'S DISEASE
     Dates: start: 20120316
  3. ALFACALCIDOL [Concomitant]
     Indication: CROHN'S DISEASE
     Route: 048
     Dates: start: 20120316
  4. TPN [Concomitant]
     Indication: CROHN'S DISEASE
     Dates: start: 20120404
  5. HUMIRA [Suspect]
     Indication: CROHN'S DISEASE
     Route: 058
     Dates: start: 20120615, end: 20120615
  6. LACTOMIN [Concomitant]
     Indication: CROHN'S DISEASE
     Dates: start: 20120316
  7. DAIKENCHUUTOU [Concomitant]
     Indication: CROHN'S DISEASE

REACTIONS (5)
  - BLOOD PRESSURE DECREASED [None]
  - INJECTION SITE PAIN [None]
  - PERIPHERAL COLDNESS [None]
  - FEELING HOT [None]
  - HYPERHIDROSIS [None]
